FAERS Safety Report 6732306-5 (Version None)
Quarter: 2010Q2

REPORT INFORMATION
  Report Type: 
  Country: None (occurrence: None)
  Receive Date: 20100519
  Receipt Date: 20100510
  Transmission Date: 20101027
  Serious: Yes (Hospitalization)
  Sender: FDA-Public Use
  Company Number: US-ALEXION-A201000540

PATIENT
  Sex: Female

DRUGS (1)
  1. SOLIRIS [Suspect]
     Indication: PAROXYSMAL NOCTURNAL HAEMOGLOBINURIA
     Dosage: UNK

REACTIONS (6)
  - CARDIOVASCULAR EVALUATION [None]
  - DIZZINESS [None]
  - FATIGUE [None]
  - HAEMOGLOBINURIA [None]
  - PAIN IN JAW [None]
  - TRISMUS [None]
